FAERS Safety Report 25925235 (Version 1)
Quarter: 2025Q4

REPORT INFORMATION
  Report Type: Spontaneous
  Country: GB (occurrence: GB)
  Receive Date: 20251015
  Receipt Date: 20251015
  Transmission Date: 20260118
  Serious: Yes (Other)
  Sender: SAMSUNG BIOEPIS
  Company Number: None

PATIENT
  Age: 51 Year
  Sex: Female
  Weight: 72 kg

DRUGS (2)
  1. PYZCHIVA [Suspect]
     Active Substance: USTEKINUMAB-TTWE
     Indication: Inflammatory bowel disease
     Dosage: 90 EVERY 28 DAYS
     Dates: start: 202412
  2. PYZCHIVA [Suspect]
     Active Substance: USTEKINUMAB-TTWE
     Dosage: 90 EVERY 28 DAYS
     Dates: start: 20240903

REACTIONS (1)
  - Hallucination [Recovered/Resolved]
